FAERS Safety Report 13465287 (Version 2)
Quarter: 2017Q2

REPORT INFORMATION
  Report Type: Spontaneous
  Country: HN (occurrence: HN)
  Receive Date: 20170421
  Receipt Date: 20170506
  Transmission Date: 20170830
  Serious: Yes (Other)
  Sender: FDA-Public Use
  Company Number: HN-AMGEN-HNDSP2017057183

PATIENT
  Age: 51 Year
  Sex: Female

DRUGS (1)
  1. ENBREL [Suspect]
     Active Substance: ETANERCEPT
     Indication: PRODUCT USED FOR UNKNOWN INDICATION
     Dosage: UNK
     Route: 065

REACTIONS (7)
  - Immune thrombocytopenic purpura [Unknown]
  - Blood urine present [Recovering/Resolving]
  - Arthropathy [Recovering/Resolving]
  - Dysphonia [Recovering/Resolving]
  - Bone disorder [Recovering/Resolving]
  - Viral upper respiratory tract infection [Recovering/Resolving]
  - Occupational exposure to product [Unknown]
